FAERS Safety Report 7551614-1 (Version None)
Quarter: 2011Q2

REPORT INFORMATION
  Report Type: 
  Country: None (occurrence: None)
  Receive Date: 20110616
  Receipt Date: 20110610
  Transmission Date: 20111010
  Serious: Yes (Hospitalization)
  Sender: FDA-Public Use
  Company Number: DE-PFIZER INC-2011127009

PATIENT
  Age: 72 Year
  Sex: Male
  Weight: 74 kg

DRUGS (5)
  1. TEMSIROLIMUS [Suspect]
     Dosage: 30 MG, WEEKLY
     Route: 042
     Dates: start: 20110309
  2. PAMIDRONATE DISODIUM [Concomitant]
     Dosage: 90 MG, WEEKLY
  3. FENISTIL [Concomitant]
     Indication: PREMEDICATION
     Dosage: 4 MG, WEEKLY
     Dates: start: 20101215
  4. LASIX [Concomitant]
     Dosage: 20 MG, 2X/DAY
  5. TEMSIROLIMUS [Suspect]
     Indication: RENAL CANCER METASTATIC
     Dosage: 30 MG, WEEKLY
     Route: 042
     Dates: start: 20101215, end: 20110223

REACTIONS (1)
  - PLEURAL EFFUSION [None]
